FAERS Safety Report 8319769-9 (Version None)
Quarter: 2012Q2

REPORT INFORMATION
  Report Type: 
  Country: None (occurrence: None)
  Receive Date: 20120427
  Receipt Date: 20120426
  Transmission Date: 20120825
  Serious: Yes (Hospitalization)
  Sender: FDA-Public Use
  Company Number: US-FRI-1000029974

PATIENT
  Sex: Female
  Weight: 89.8 kg

DRUGS (4)
  1. MOTRIN [Concomitant]
     Indication: FIBROMYALGIA
     Route: 048
     Dates: start: 20100101
  2. MOTRIN [Concomitant]
     Indication: HEADACHE
  3. CALCIUM CARBONATE [Concomitant]
     Indication: DYSPEPSIA
     Route: 048
     Dates: start: 20090101
  4. MILNACIPRAN (OPEN-LABEL) [Suspect]
     Indication: FIBROMYALGIA
     Dosage: 100 MG
     Route: 048
     Dates: start: 20111001, end: 20120417

REACTIONS (1)
  - CHOLECYSTITIS [None]
